FAERS Safety Report 9534019 (Version 2)
Quarter: 2013Q3

REPORT INFORMATION
  Report Type: Spontaneous
  Country: US (occurrence: US)
  Receive Date: 20130918
  Receipt Date: 20130918
  Transmission Date: 20140515
  Serious: No
  Sender: FDA-Public Use
  Company Number: US-PURDUE-USA-2011-0076856

PATIENT
  Sex: Female

DRUGS (2)
  1. BUTRANS [Suspect]
     Indication: PAIN
     Dosage: 10 MCG, Q1H
     Route: 062
     Dates: start: 2011, end: 20111024
  2. R-TANNA [Suspect]
     Indication: PRODUCT USED FOR UNKNOWN INDICATION
     Dosage: 1 TABLET, Q12H
     Route: 048
     Dates: start: 20111010, end: 20111101

REACTIONS (9)
  - Sensation of foreign body [Recovered/Resolved]
  - Breath sounds abnormal [Recovered/Resolved]
  - Wrong technique in drug usage process [Unknown]
  - Dyspepsia [Recovered/Resolved]
  - Application site pruritus [Recovered/Resolved]
  - Feeling jittery [Unknown]
  - Intentional drug misuse [Unknown]
  - Application site rash [Recovered/Resolved]
  - Paraesthesia [Recovered/Resolved]
